FAERS Safety Report 11701651 (Version 4)
Quarter: 2019Q1

REPORT INFORMATION
  Report Type: Spontaneous
  Country: LB (occurrence: LB)
  Receive Date: 20151105
  Receipt Date: 20190107
  Transmission Date: 20190417
  Serious: Yes (Death, Hospitalization, Disabling, Other)
  Sender: FDA-Public Use
  Company Number: PHHY2015LB136810

PATIENT
  Age: 45 Year
  Sex: Male
  Weight: 79 kg

DRUGS (4)
  1. KEPPRA [Concomitant]
     Active Substance: LEVETIRACETAM
     Indication: PRODUCT USED FOR UNKNOWN INDICATION
     Route: 065
  2. DEPAKIN [Concomitant]
     Active Substance: VALPROATE SODIUM
     Indication: PRODUCT USED FOR UNKNOWN INDICATION
     Route: 065
  3. GILENYA [Suspect]
     Active Substance: FINGOLIMOD HYDROCHLORIDE
     Indication: MULTIPLE SCLEROSIS
     Dosage: UNK UNK, QD
     Route: 048
     Dates: start: 20121023, end: 201510
  4. LAMICTAL [Concomitant]
     Active Substance: LAMOTRIGINE
     Indication: PRODUCT USED FOR UNKNOWN INDICATION
     Dosage: UNK
     Route: 065

REACTIONS (14)
  - Memory impairment [Unknown]
  - Abdominal pain [Unknown]
  - Lymphopenia [Unknown]
  - Coma [Fatal]
  - Influenza like illness [Unknown]
  - Headache [Unknown]
  - Central nervous system lesion [Unknown]
  - CSF glucose decreased [Unknown]
  - Meningitis cryptococcal [Fatal]
  - Vomiting [Unknown]
  - Vertigo [Unknown]
  - White blood cell count increased [Unknown]
  - Nausea [Unknown]
  - Fungal infection [Unknown]

NARRATIVE: CASE EVENT DATE: 201509
